FAERS Safety Report 7059499-7 (Version None)
Quarter: 2010Q4

REPORT INFORMATION
  Report Type: 
  Country: None (occurrence: None)
  Receive Date: 20101025
  Receipt Date: 20101015
  Transmission Date: 20110411
  Serious: Yes (Hospitalization, Other)
  Sender: FDA-Public Use
  Company Number: CO-WYE-H18251710

PATIENT
  Sex: Female

DRUGS (6)
  1. ENBREL [Suspect]
     Indication: RHEUMATOID ARTHRITIS
     Route: 058
     Dates: start: 19990101
  2. HYDROCHLOROTHIAZIDE [Concomitant]
     Dosage: 1/2 TABLET DAILY, DOSE NOT SPECIFIED
     Route: 048
  3. NORVASC [Suspect]
     Indication: HYPERTENSION
     Route: 048
  4. LOSARTAN [Concomitant]
     Dosage: 50 MG, FREQUENCY NOT SPECIFIED
     Dates: start: 19900101
  5. IBUPROFEN [Suspect]
     Indication: ARTHRALGIA
     Dosage: UNKNOWN
     Route: 065
  6. METHOTREXATE [Suspect]
     Indication: RHEUMATOID ARTHRITIS
     Dosage: 10 MG TABLETS WEEKLY, FREQUENCY UNSPECIFIED
     Route: 048
     Dates: start: 19980101, end: 20080101

REACTIONS (2)
  - HYPOACUSIS [None]
  - PULMONARY FIBROSIS [None]
